FAERS Safety Report 10485689 (Version 1)
Quarter: 2014Q4

REPORT INFORMATION
  Report Type: Spontaneous
  Country: DE (occurrence: DE)
  Receive Date: 20141001
  Receipt Date: 20141001
  Transmission Date: 20150528
  Serious: Yes (Congenital Anomaly, Other)
  Sender: FDA-Public Use
  Company Number: DE-UCBSA-2014012790

PATIENT
  Age: 0 Year
  Sex: Male
  Weight: 2.85 kg

DRUGS (6)
  1. VIMPAT [Suspect]
     Active Substance: LACOSAMIDE
     Indication: EPILEPSY
     Dosage: 450MG/D (150-0-300)
     Route: 064
     Dates: start: 20120921
  2. LAMOTRIGIN [Suspect]
     Active Substance: LAMOTRIGINE
     Indication: EPILEPSY
     Dosage: 350MG/D (200-0-150)
     Route: 064
     Dates: start: 20120921
  3. LAMOTRIGIN [Suspect]
     Active Substance: LAMOTRIGINE
     Dosage: DOSE INCREASED
     Route: 064
     Dates: end: 20130605
  4. FOLIO [Concomitant]
     Active Substance: FOLIC ACID
     Indication: VITAMIN SUPPLEMENTATION
     Dosage: 0.4MG/DAY
     Route: 064
  5. VIMPAT [Suspect]
     Active Substance: LACOSAMIDE
     Dosage: INCREASED DOSE
     Route: 064
     Dates: end: 20130605
  6. RIVOTRIL [Concomitant]
     Active Substance: CLONAZEPAM
     Indication: EPILEPSY
     Dosage: 2MG AS NEEDED (PRN)
     Route: 064

REACTIONS (5)
  - Congenital melanocytic naevus [Not Recovered/Not Resolved]
  - Hypothermia neonatal [Recovered/Resolved]
  - Premature baby [Unknown]
  - Neonatal respiratory distress syndrome [Recovered/Resolved]
  - Foetal exposure during pregnancy [Unknown]

NARRATIVE: CASE EVENT DATE: 20120921
